FAERS Safety Report 5140636-6 (Version None)
Quarter: 2006Q4

REPORT INFORMATION
  Report Type: 
  Country: None (occurrence: None)
  Receive Date: 20061025
  Receipt Date: 20061012
  Transmission Date: 20070319
  Serious: Yes (Other)
  Sender: FDA-Public Use
  Company Number: 2006126138

PATIENT
  Age: 31 Year
  Sex: Male
  Weight: 84 kg

DRUGS (1)
  1. ZITHROMAX [Suspect]
     Indication: BRONCHITIS
     Dosage: 500 MG (250 MG,2 IN 1 D), ORAL
     Route: 048
     Dates: start: 20061008, end: 20061010

REACTIONS (1)
  - LIPASE INCREASED [None]
